FAERS Safety Report 9399998 (Version 4)
Quarter: 2013Q4

REPORT INFORMATION
  Report Type: Spontaneous
  Country: JP (occurrence: JP)
  Receive Date: 20130715
  Receipt Date: 20131025
  Transmission Date: 20140711
  Serious: Yes (Hospitalization, Other)
  Sender: FDA-Public Use
  Company Number: JP-JNJFOC-20130703738

PATIENT
  Age: 79 Year
  Sex: Female

DRUGS (5)
  1. REMINYL [Suspect]
     Indication: DEMENTIA
     Route: 048
     Dates: start: 2012
  2. ADALAT L [Concomitant]
     Indication: HYPERTENSION
     Route: 048
  3. URSO [Concomitant]
     Indication: CHRONIC HEPATITIS
     Route: 048
  4. THEODUR [Concomitant]
     Indication: ASTHMA
     Route: 048
     Dates: start: 20011127
  5. METGLUCO [Concomitant]
     Indication: DIABETES MELLITUS
     Route: 048
     Dates: start: 20070619

REACTIONS (3)
  - Foreign body [Recovered/Resolved]
  - Abdominal discomfort [Recovered/Resolved]
  - Decreased appetite [Recovered/Resolved]
